FAERS Safety Report 9242149 (Version 1)
Quarter: 2013Q2

REPORT INFORMATION
  Report Type: Report from Study
  Country: LB (occurrence: LB)
  Receive Date: 20130419
  Receipt Date: 20130419
  Transmission Date: 20140414
  Serious: Yes (Death, Hospitalization)
  Sender: FDA-Public Use
  Company Number: LB-INCYTE CORPORATION-2012IN002613

PATIENT
  Age: 72 Year
  Sex: Male
  Weight: 59 kg

DRUGS (12)
  1. INC424 [Suspect]
     Indication: MYELOFIBROSIS
     Dosage: 20 MG, BID
     Route: 048
     Dates: start: 20120504, end: 20120723
  2. INC424 [Suspect]
     Dosage: 20 MG, BID
     Route: 048
     Dates: end: 20121202
  3. INC424 [Suspect]
     Dosage: 5 MG, BID
     Route: 048
     Dates: start: 20130105, end: 20130325
  4. MEGACE [Concomitant]
     Dosage: UNK
     Dates: start: 2012, end: 20130325
  5. SELEN [Concomitant]
     Dosage: UNK
     Dates: start: 2004, end: 20130325
  6. CREON [Concomitant]
     Dosage: UNK
     Dates: start: 2004, end: 20130325
  7. ALDACTONE [Concomitant]
     Dosage: UNK
     Dates: start: 2004, end: 20130325
  8. LASIX [Concomitant]
     Dosage: UNK
     Dates: start: 2004, end: 20130325
  9. INDERAL [Concomitant]
     Dosage: UNK
     Dates: start: 2004, end: 20130325
  10. HYDREA [Concomitant]
     Dosage: UNK
     Dates: start: 201102, end: 201111
  11. LOVENOX [Concomitant]
     Dosage: UNK
     Dates: start: 2010, end: 20121202
  12. IMODIUM [Concomitant]
     Dosage: UNK
     Dates: start: 2004

REACTIONS (6)
  - Neuropathy peripheral [Recovering/Resolving]
  - Myalgia [Recovering/Resolving]
  - Fatigue [None]
  - Myelofibrosis [Fatal]
  - Anaemia [Recovered/Resolved]
  - General physical health deterioration [Not Recovered/Not Resolved]
